FAERS Safety Report 7628263-X (Version None)
Quarter: 2011Q3

REPORT INFORMATION
  Report Type: 
  Country: None (occurrence: None)
  Receive Date: 20110722
  Receipt Date: 20110707
  Transmission Date: 20111222
  Serious: Yes (Hospitalization)
  Sender: FDA-Public Use
  Company Number: JP-BAYER-200943724GPV

PATIENT
  Age: 79 Year
  Sex: Female
  Weight: 54 kg

DRUGS (9)
  1. SORAFENIB (RAF KINASE INHIBITOR) [Suspect]
     Indication: HEPATIC NEOPLASM MALIGNANT
     Dosage: 400 MG, QD
     Route: 048
     Dates: start: 20091209, end: 20091214
  2. LIVACT [Concomitant]
     Indication: HYPOALBUMINAEMIA
  3. LACTULOSE [Concomitant]
     Indication: HYPERAMMONAEMIA
  4. FAMOTIDINE [Concomitant]
     Indication: PROPHYLAXIS AGAINST GASTROINTESTINAL ULCER
  5. NORVASC [Concomitant]
     Indication: HYPERTENSION
  6. LAXOBERON [Concomitant]
     Indication: CONSTIPATION
  7. FERROUS CITRATE [Concomitant]
     Indication: ANAEMIA
  8. PENFILL R [Concomitant]
     Indication: PROPHYLAXIS AGAINST GASTROINTESTINAL ULCER
  9. PORTOLAC [Concomitant]
     Indication: HYPERAMMONAEMIA

REACTIONS (1)
  - HEPATIC ENCEPHALOPATHY [None]
